APPROVED DRUG PRODUCT: STILBESTROL
Active Ingredient: DIETHYLSTILBESTROL
Strength: 0.5MG
Dosage Form/Route: TABLET, DELAYED RELEASE;ORAL
Application: A083003 | Product #001
Applicant: TABLICAPS INC
Approved: Approved Prior to Jan 1, 1982 | RLD: No | RS: No | Type: DISCN